FAERS Safety Report 18802362 (Version 1)
Quarter: 2021Q1

REPORT INFORMATION
  Report Type: Spontaneous
  Country: CA (occurrence: CA)
  Receive Date: 20210129
  Receipt Date: 20210129
  Transmission Date: 20210419
  Serious: Yes (Hospitalization)
  Sender: FDA-Public Use
  Company Number: CA-TEVA-2021-CA-1871798

PATIENT
  Age: 74 Year
  Sex: Male
  Weight: 100 kg

DRUGS (31)
  1. GRASTOFIL SINGLE USE PRE?FILLED SYRINGE [Concomitant]
     Active Substance: FILGRASTIM
  2. LEUCOVORIN. [Concomitant]
     Active Substance: LEUCOVORIN
  3. POTASSIUM [Concomitant]
     Active Substance: POTASSIUM
  4. ACETAMINOPHEN. [Concomitant]
     Active Substance: ACETAMINOPHEN
  5. DEXAMETHASONE. [Concomitant]
     Active Substance: DEXAMETHASONE
     Route: 065
  6. HUMULIN NOS [Concomitant]
     Active Substance: INSULIN HUMAN
  7. MAXERAN 5MG TAB [Concomitant]
  8. METFORMIN [Concomitant]
     Active Substance: METFORMIN HYDROCHLORIDE
  9. PIOGLITAZONE. [Concomitant]
     Active Substance: PIOGLITAZONE
  10. PREGABALIN. [Concomitant]
     Active Substance: PREGABALIN
  11. METHOTREXATE INJECTION, BP [Suspect]
     Active Substance: METHOTREXATE
     Indication: DIFFUSE LARGE B-CELL LYMPHOMA
     Route: 013
  12. EZETIMIBE. [Concomitant]
     Active Substance: EZETIMIBE
  13. GLYBURIDE. [Concomitant]
     Active Substance: GLYBURIDE
  14. IRON SULPHATE [Concomitant]
     Active Substance: FERROUS SULFATE ANHYDROUS
  15. NOVORAPID [Concomitant]
     Active Substance: INSULIN ASPART
  16. PERINDOPRIL [Concomitant]
     Active Substance: PERINDOPRIL
  17. TINZAPARIN [Concomitant]
     Active Substance: TINZAPARIN
  18. CARBOPLATIN INJECTION [Suspect]
     Active Substance: CARBOPLATIN
     Indication: DIFFUSE LARGE B-CELL LYMPHOMA
     Route: 013
  19. DEXTROSE 5% IN WATER [Concomitant]
  20. GRAVOL [Concomitant]
     Active Substance: DIMENHYDRINATE
  21. HYDROMORPHONE [Concomitant]
     Active Substance: HYDROMORPHONE
  22. JANUVIA [Concomitant]
     Active Substance: SITAGLIPTIN PHOSPHATE
     Route: 065
  23. ONDANSETRON [Concomitant]
     Active Substance: ONDANSETRON
  24. DIAZEPAM. [Concomitant]
     Active Substance: DIAZEPAM
  25. NADOLOL. [Concomitant]
     Active Substance: NADOLOL
  26. NITROGLYCERIN. [Concomitant]
     Active Substance: NITROGLYCERIN
  27. SODIUM BICARBONATE INJECTABLE [Concomitant]
  28. SPIRONOLACTONE. [Concomitant]
     Active Substance: SPIRONOLACTONE
  29. SODIUM CHLORIDE. [Concomitant]
     Active Substance: SODIUM CHLORIDE
  30. RANITIDINE. [Concomitant]
     Active Substance: RANITIDINE
  31. ROSUVASTATIN. [Concomitant]
     Active Substance: ROSUVASTATIN

REACTIONS (17)
  - Febrile neutropenia [Recovering/Resolving]
  - Renal tubular necrosis [Recovering/Resolving]
  - Altered state of consciousness [Recovering/Resolving]
  - Iatrogenic injury [Recovering/Resolving]
  - Mucosal inflammation [Recovering/Resolving]
  - Acute pulmonary oedema [Recovering/Resolving]
  - Neurological decompensation [Recovering/Resolving]
  - Pancytopenia [Recovering/Resolving]
  - Toxic encephalopathy [Recovering/Resolving]
  - Delirium [Recovering/Resolving]
  - Hypoalbuminaemia [Recovering/Resolving]
  - Urethritis [Recovering/Resolving]
  - Acute kidney injury [Recovering/Resolving]
  - Myelosuppression [Recovering/Resolving]
  - Nephropathy toxic [Recovering/Resolving]
  - Toxicity to various agents [Recovering/Resolving]
  - Confusional state [Recovering/Resolving]
